FAERS Safety Report 6248531-6 (Version None)
Quarter: 2009Q2

REPORT INFORMATION
  Report Type: 
  Country: None (occurrence: None)
  Receive Date: 20090624
  Receipt Date: 20090624
  Transmission Date: 20091009
  Serious: No
  Sender: FDA-Public Use
  Company Number: None

PATIENT
  Age: 67 Year
  Sex: Male
  Weight: 68.9467 kg

DRUGS (1)
  1. RANEXA [Suspect]
     Indication: ANGINA PECTORIS
     Dosage: 500 MG TWICE/DAY PO
     Route: 048
     Dates: start: 20090523, end: 20090524

REACTIONS (4)
  - BURNING SENSATION [None]
  - CONFUSIONAL STATE [None]
  - FLUSHING [None]
  - TINNITUS [None]
